FAERS Safety Report 7964781-2 (Version None)
Quarter: 2011Q4

REPORT INFORMATION
  Report Type: 
  Country: None (occurrence: None)
  Receive Date: 20111206
  Receipt Date: 20111206
  Transmission Date: 20120403
  Serious: No
  Sender: FDA-Public Use
  Company Number: None

PATIENT
  Sex: Female
  Weight: 102.0593 kg

DRUGS (1)
  1. ENBREL [Suspect]
     Indication: PSORIATIC ARTHROPATHY
     Dosage: 50MG BIW SQ
     Route: 058
     Dates: start: 20111108, end: 20111127

REACTIONS (3)
  - RASH [None]
  - URTICARIA [None]
  - LIP SWELLING [None]
